FAERS Safety Report 25723702 (Version 2)
Quarter: 2025Q4

REPORT INFORMATION
  Report Type: Spontaneous
  Country: US (occurrence: US)
  Receive Date: 20250825
  Receipt Date: 20251006
  Transmission Date: 20260118
  Serious: No
  Sender: GLAUKOS
  Company Number: US-GLK-000669

PATIENT
  Age: 75 Year
  Sex: Female

DRUGS (7)
  1. IDOSE TR [Suspect]
     Active Substance: TRAVOPROST
     Indication: Intraocular pressure increased
     Dosage: OPERATED ON RIGHT EYE (OD)
     Route: 047
     Dates: start: 20250527, end: 20250527
  2. IDOSE TR [Suspect]
     Active Substance: TRAVOPROST
  3. PREDNISOLONE ACETATE [Concomitant]
     Active Substance: PREDNISOLONE ACETATE
     Dosage: PRE-OPERATIVE AND POST-OPERATIVE MEDICATION
     Route: 047
  4. MOXIFLOXACIN [Concomitant]
     Active Substance: MOXIFLOXACIN
     Dosage: PRE-OPERATIVE AND POST-OPERATIVE MEDICATION
     Route: 047
  5. BROMFENAC [Concomitant]
     Active Substance: BROMFENAC
     Dosage: PRE-OPERATIVE AND POST-OPERATIVE MEDICATION
     Route: 047
  6. COMBIGAN [Concomitant]
     Active Substance: BRIMONIDINE TARTRATE\TIMOLOL MALEATE
     Route: 047
  7. LATANOPROST [Concomitant]
     Active Substance: LATANOPROST
     Route: 047

REACTIONS (3)
  - Intraocular pressure increased [Recovered/Resolved with Sequelae]
  - Medical device removal [Unknown]
  - Medical device removal [Unknown]

NARRATIVE: CASE EVENT DATE: 20250903
